FAERS Safety Report 9014355 (Version 2)
Quarter: 2013Q1

REPORT INFORMATION
  Report Type: Spontaneous
  Country: US (occurrence: US)
  Receive Date: 20130115
  Receipt Date: 20130128
  Transmission Date: 20140127
  Serious: No
  Sender: FDA-Public Use
  Company Number: US-PFIZER INC-2013014059

PATIENT
  Age: 69 Year
  Sex: Female
  Weight: 52.61 kg

DRUGS (1)
  1. PREMARIN VAGINAL CREAM [Suspect]
     Indication: HORMONE REPLACEMENT THERAPY
     Dosage: UNK, 2X/WEEK
     Route: 067

REACTIONS (1)
  - Laceration [Unknown]
